FAERS Safety Report 24859749 (Version 2)
Quarter: 2025Q1

REPORT INFORMATION
  Report Type: Report from Study
  Country: US (occurrence: US)
  Receive Date: 20250119
  Receipt Date: 20250203
  Transmission Date: 20250409
  Serious: Yes (Hospitalization)
  Sender: JOHNSON AND JOHNSON
  Company Number: US-ABBVIE-6090673

PATIENT
  Age: 79 Year
  Sex: Male

DRUGS (1)
  1. IMBRUVICA [Suspect]
     Active Substance: IBRUTINIB
     Indication: B-cell small lymphocytic lymphoma
     Route: 048
     Dates: start: 20241210, end: 20250109

REACTIONS (5)
  - Confusional state [Unknown]
  - Hypertension [Unknown]
  - Agitation [Unknown]
  - Decreased appetite [Unknown]
  - Unevaluable event [Unknown]
